FAERS Safety Report 24604807 (Version 3)
Quarter: 2024Q4

REPORT INFORMATION
  Report Type: Report from Study
  Country: US (occurrence: US)
  Receive Date: 20241111
  Receipt Date: 20241227
  Transmission Date: 20250114
  Serious: Yes (Hospitalization, Other)
  Sender: GILEAD
  Company Number: US-GILEAD-2024-0692902

PATIENT
  Age: 69 Year
  Sex: Female
  Weight: 76.3 kg

DRUGS (30)
  1. SACITUZUMAB GOVITECAN-HZIY [Suspect]
     Active Substance: SACITUZUMAB GOVITECAN-HZIY
     Indication: Hepatocellular carcinoma
     Dosage: ON DAY 1 AND 8 OF 21 DAY CYCLES
     Route: 042
     Dates: start: 20241017, end: 20241026
  2. SACITUZUMAB GOVITECAN-HZIY [Suspect]
     Active Substance: SACITUZUMAB GOVITECAN-HZIY
     Dosage: 797.7 MG (ON DAY 1 AND 8 OF 21 DAY CYCLES)
     Route: 042
     Dates: start: 20240926, end: 20241219
  3. VANCOMYCIN [Concomitant]
     Active Substance: VANCOMYCIN
     Dosage: 2 G
     Route: 042
  4. ZOSYN [Concomitant]
     Active Substance: PIPERACILLIN SODIUM\TAZOBACTAM SODIUM
     Dosage: 4.5 G
     Route: 042
  5. TRA [Concomitant]
     Dosage: ADDITIONAL 2 LITERS TRA 500 ML/H
  6. TYLENOL [Concomitant]
     Active Substance: ACETAMINOPHEN
  7. APPLE CIDER VINEGAR [CYANOCOBALAMIN;FOLIC ACID;MALUS SPP. VINEGAR EXTR [Concomitant]
  8. DECADRON [Concomitant]
     Active Substance: DEXAMETHASONE
  9. DIPHENHYDRAMINE [Concomitant]
     Active Substance: DIPHENHYDRAMINE
  10. ESTRADIOL [Concomitant]
     Active Substance: ESTRADIOL
  11. ATARAX [Concomitant]
     Active Substance: HYDROXYZINE HYDROCHLORIDE
  12. LEVAQUIN [Concomitant]
     Active Substance: LEVOFLOXACIN
     Indication: Pseudomonal bacteraemia
  13. LISINOPRIL [Concomitant]
     Active Substance: LISINOPRIL
  14. ATIVAN [Concomitant]
     Active Substance: LORAZEPAM
  15. MAGOX [Concomitant]
  16. MEGACE [Concomitant]
     Active Substance: MEGESTROL ACETATE
  17. METFORMIN [Concomitant]
     Active Substance: METFORMIN HYDROCHLORIDE
  18. ZYPREXA [Concomitant]
     Active Substance: OLANZAPINE
  19. XARELTO [Concomitant]
     Active Substance: RIVAROXABAN
     Indication: Pulmonary embolism
  20. ALDACTONE [Concomitant]
     Active Substance: SPIRONOLACTONE
  21. SPIRONOLACTONE [Concomitant]
     Active Substance: SPIRONOLACTONE
  22. HUMAN RED BLOOD CELL [Concomitant]
     Active Substance: HUMAN RED BLOOD CELL
  23. HYDROXYZINE [Concomitant]
     Active Substance: HYDROXYZINE HYDROCHLORIDE
  24. OLANZAPINE [Concomitant]
     Active Substance: OLANZAPINE
  25. URSODIOL [Concomitant]
     Active Substance: URSODIOL
  26. CEFEPIME [Concomitant]
     Active Substance: CEFEPIME HYDROCHLORIDE
     Dosage: 2G Q 8 HOURS
  27. METRONIDAZOLE [Concomitant]
     Active Substance: METRONIDAZOLE
     Dosage: 500 MG, BID
     Route: 048
  28. PEPCID [Concomitant]
     Active Substance: FAMOTIDINE
  29. ALOXI [Concomitant]
     Active Substance: PALONOSETRON HYDROCHLORIDE
  30. CINVANTI [Concomitant]
     Active Substance: APREPITANT

REACTIONS (9)
  - Pyrexia [Unknown]
  - Chills [Unknown]
  - Sepsis [Unknown]
  - Diarrhoea [Unknown]
  - Mental status changes [Unknown]
  - Incoherent [Unknown]
  - Biliary tract infection [Unknown]
  - Biliary tract infection [Unknown]
  - Off label use [Unknown]

NARRATIVE: CASE EVENT DATE: 20241030
